FAERS Safety Report 5878416-6 (Version None)
Quarter: 2008Q3

REPORT INFORMATION
  Report Type: 
  Country: None (occurrence: None)
  Receive Date: 20080909
  Receipt Date: 20080825
  Transmission Date: 20090109
  Serious: Yes (Hospitalization)
  Sender: FDA-Public Use
  Company Number: 1000000803

PATIENT
  Sex: Male

DRUGS (1)
  1. CELEXA [Suspect]

REACTIONS (2)
  - AGITATION [None]
  - MOOD ALTERED [None]
